FAERS Safety Report 8798508 (Version 2)
Quarter: 2015Q2

REPORT INFORMATION
  Report Type: Report from Study
  Country: US (occurrence: US)
  Receive Date: 20120920
  Receipt Date: 20150622
  Transmission Date: 20150821
  Serious: Yes (Death)
  Sender: FDA-Public Use
  Company Number: US-ROCHE-1123520

PATIENT
  Sex: Female

DRUGS (7)
  1. DECADRON [Concomitant]
     Active Substance: DEXAMETHASONE
     Route: 042
  2. TAGAMET [Concomitant]
     Active Substance: CIMETIDINE
     Route: 065
  3. AVASTIN [Suspect]
     Active Substance: BEVACIZUMAB
     Indication: MALIGNANT NEOPLASM OF UTERINE ADNEXA
  4. TAXOL [Concomitant]
     Active Substance: PACLITAXEL
     Route: 042
  5. BENADRYL [Concomitant]
     Active Substance: DIPHENHYDRAMINE HYDROCHLORIDE
     Route: 042
  6. AVASTIN [Suspect]
     Active Substance: BEVACIZUMAB
     Indication: OVARIAN CANCER
     Dosage: ON 27/DEC/2006, 09/JAN/2007, 24/JAN/2007
     Route: 042
     Dates: start: 20061213
  7. TAXOL [Concomitant]
     Active Substance: PACLITAXEL
     Dosage: 3 WEEKS OUT OF 4 WEEKS
     Route: 042

REACTIONS (8)
  - Pelvic pain [Unknown]
  - Death [Fatal]
  - Fatigue [Unknown]
  - Constipation [Recovering/Resolving]
  - Neuropathy peripheral [Unknown]
  - Abdominal pain [Unknown]
  - Epistaxis [Unknown]
  - Depression [Unknown]
